FAERS Safety Report 6137384-2 (Version None)
Quarter: 2009Q1

REPORT INFORMATION
  Report Type: 
  Country: None (occurrence: None)
  Receive Date: 20090330
  Receipt Date: 20090320
  Transmission Date: 20090719
  Serious: Yes (Life-Threatening)
  Sender: FDA-Public Use
  Company Number: ES-ABBOTT-09P-144-0563601-00

PATIENT
  Age: 38 Year
  Sex: Male

DRUGS (6)
  1. DEPAKENE [Suspect]
     Indication: DRUG USE FOR UNKNOWN INDICATION
     Route: 048
     Dates: start: 20080301, end: 20080812
  2. ZIDOVUDINE [Interacting]
     Indication: HIV INFECTION
     Route: 048
     Dates: start: 20050101, end: 20080808
  3. LAMIVUDINE [Concomitant]
     Indication: HIV INFECTION
     Route: 048
     Dates: start: 20050101
  4. ABACAVIR [Concomitant]
     Indication: HIV INFECTION
     Route: 048
     Dates: start: 20050101
  5. CLONAZEPAM [Concomitant]
     Indication: ANTISOCIAL PERSONALITY DISORDER
     Route: 048
     Dates: start: 20080101
  6. VIREAD [Concomitant]
     Indication: HIV INFECTION
     Route: 048
     Dates: start: 20050101, end: 20080808

REACTIONS (2)
  - APLASIA PURE RED CELL [None]
  - DRUG INTERACTION [None]
